FAERS Safety Report 5684100-4 (Version None)
Quarter: 2008Q1

REPORT INFORMATION
  Report Type: 
  Country: None (occurrence: None)
  Receive Date: 20080327
  Receipt Date: 20080327
  Transmission Date: 20080703
  Serious: Yes (Hospitalization)
  Sender: FDA-Public Use
  Company Number: None

PATIENT
  Sex: Female
  Weight: 109.77 kg

DRUGS (2)
  1. CISPLATIN [Suspect]
     Dosage: 60 MG
  2. ERBITUX [Suspect]
     Dosage: 800 MG

REACTIONS (17)
  - ABNORMAL FAECES [None]
  - BLOOD CREATININE INCREASED [None]
  - CERVIX CANCER METASTATIC [None]
  - CERVIX CARCINOMA RECURRENT [None]
  - DEEP VEIN THROMBOSIS [None]
  - DEHYDRATION [None]
  - DIZZINESS [None]
  - FAECES HARD [None]
  - FLATULENCE [None]
  - LUNG NEOPLASM [None]
  - METASTASES TO CHEST WALL [None]
  - NAUSEA [None]
  - NIGHT SWEATS [None]
  - ORAL INTAKE REDUCED [None]
  - PULMONARY EMBOLISM [None]
  - VAGINAL HAEMORRHAGE [None]
  - VOMITING [None]
